FAERS Safety Report 8113217-X (Version None)
Quarter: 2012Q1

REPORT INFORMATION
  Report Type: 
  Country: None (occurrence: None)
  Receive Date: 20120203
  Receipt Date: 20120125
  Transmission Date: 20120608
  Serious: Yes (Other)
  Sender: FDA-Public Use
  Company Number: PHEH2012US002242

PATIENT
  Sex: Female

DRUGS (4)
  1. AREDIA [Suspect]
     Dosage: 90 MG, EVERY 3-4 WEEKS
  2. DECADRON #1 [Concomitant]
  3. ADRIAMYCIN PFS [Concomitant]
  4. VINCRISTINE [Concomitant]

REACTIONS (9)
  - FEBRILE NEUTROPENIA [None]
  - PNEUMONIA [None]
  - HYPERCALCAEMIA [None]
  - MENTAL DISORDER [None]
  - STAPHYLOCOCCAL BACTERAEMIA [None]
  - NEUTROPENIC SEPSIS [None]
  - OSTEOLYSIS [None]
  - PULMONARY VALVE INCOMPETENCE [None]
  - TUBULOINTERSTITIAL NEPHRITIS [None]
